FAERS Safety Report 9049499 (Version 1)
Quarter: 2013Q1

REPORT INFORMATION
  Report Type: Spontaneous
  Country: IT (occurrence: IT)
  Receive Date: 20130205
  Receipt Date: 20130205
  Transmission Date: 20140127
  Serious: Yes (Hospitalization)
  Sender: FDA-Public Use
  Company Number: PHHY2013IT009323

PATIENT
  Sex: Female

DRUGS (8)
  1. METHOTREXATE [Suspect]
     Indication: RHEUMATOID ARTHRITIS
     Dosage: 10 MG, WEEKLY
     Dates: start: 20101203, end: 20110201
  2. ENBREL [Suspect]
     Indication: RHEUMATOID ARTHRITIS
     Dosage: 50 MG, WEEKLY
     Route: 058
     Dates: start: 20091216, end: 20110118
  3. EUTIROX [Concomitant]
     Indication: HYPOTHYROIDISM
  4. FOLINA [Concomitant]
     Indication: RHEUMATOID ARTHRITIS
     Dosage: UNK UKN, UNK
     Dates: start: 20101204, end: 20110201
  5. OPTINATE [Concomitant]
     Indication: OSTEOPOROSIS
  6. CALCIUM CARBONATE/VITAMIN D3 [Concomitant]
     Indication: OSTEOPOROSIS
  7. ORUDIS [Concomitant]
     Indication: RHEUMATOID ARTHRITIS
  8. LANSOPRAZOLE [Concomitant]
     Indication: GASTRITIS

REACTIONS (1)
  - Breast cancer [Recovered/Resolved]
